FAERS Safety Report 6003374-3 (Version None)
Quarter: 2008Q4

REPORT INFORMATION
  Report Type: 
  Country: None (occurrence: None)
  Receive Date: 20081216
  Receipt Date: 20080725
  Transmission Date: 20090506
  Serious: No
  Sender: FDA-Public Use
  Company Number: US-AMGEN-KDL292022

PATIENT
  Sex: Female
  Weight: 77.2 kg

DRUGS (10)
  1. ENBREL [Suspect]
     Indication: RHEUMATOID ARTHRITIS
     Route: 058
     Dates: start: 20080513
  2. METHOTREXATE [Concomitant]
     Route: 058
  3. PLAQUENIL [Concomitant]
     Route: 048
  4. PLAVIX [Concomitant]
  5. PRILOSEC [Concomitant]
  6. DILANTIN [Concomitant]
  7. ADVAIR DISKUS 250/50 [Concomitant]
  8. SYNTHROID [Concomitant]
  9. DARVOCET-N 100 [Concomitant]
  10. LEUCOVORIN CALCIUM [Concomitant]

REACTIONS (1)
  - URINARY TRACT INFECTION [None]
